FAERS Safety Report 9587140 (Version 3)
Quarter: 2013Q4

REPORT INFORMATION
  Report Type: Spontaneous
  Country: JP (occurrence: JP)
  Receive Date: 20131003
  Receipt Date: 20131113
  Transmission Date: 20140711
  Serious: Yes (Life-Threatening)
  Sender: FDA-Public Use
  Company Number: JP-ASTRAZENECA-2013SE67827

PATIENT
  Age: 60 Year
  Sex: Male

DRUGS (17)
  1. MEROPEN [Suspect]
     Indication: FEBRILE NEUTROPENIA
     Route: 042
     Dates: start: 20130813, end: 20130814
  2. AMBISOME [Concomitant]
     Route: 042
  3. CRAVIT [Concomitant]
     Indication: INFLAMMATION
     Route: 042
     Dates: start: 20130711, end: 20130715
  4. FUNGUARD [Concomitant]
     Indication: FEBRILE NEUTROPENIA
     Route: 042
     Dates: start: 20130715, end: 20130819
  5. FUNGUARD [Concomitant]
     Indication: INFLAMMATION
     Route: 042
     Dates: start: 20130715, end: 20130819
  6. MAXIPIME [Concomitant]
     Indication: INFLAMMATION
     Route: 042
     Dates: start: 20130718, end: 20130812
  7. GRAN [Concomitant]
     Indication: NEUTROPENIA
     Route: 058
     Dates: start: 20130807, end: 20130814
  8. GRAN [Concomitant]
     Indication: NEUTROPENIA
     Route: 058
     Dates: start: 20130815, end: 20130815
  9. GRAN [Concomitant]
     Indication: NEUTROPENIA
     Route: 058
     Dates: start: 20130816, end: 20130819
  10. GRAN [Concomitant]
     Indication: NEUTROPENIA
     Route: 058
     Dates: start: 20130820, end: 20130825
  11. VANCOMYCIN HYDROCHLORIDE [Concomitant]
     Indication: FEBRILE NEUTROPENIA
     Route: 042
     Dates: start: 20130811, end: 20130814
  12. VANCOMYCIN HYDROCHLORIDE [Concomitant]
     Indication: FEBRILE NEUTROPENIA
     Route: 042
     Dates: start: 20130815, end: 20130819
  13. VENOGLOBULIN-IH [Concomitant]
     Indication: FEBRILE NEUTROPENIA
     Route: 042
     Dates: start: 20130813, end: 20130815
  14. WYSTAL [Concomitant]
     Indication: FEBRILE NEUTROPENIA
     Route: 042
     Dates: start: 20130814, end: 20130828
  15. TOBRACIN [Concomitant]
     Indication: FEBRILE NEUTROPENIA
     Route: 042
     Dates: start: 20130815, end: 20130818
  16. PASIL [Concomitant]
     Indication: FEBRILE NEUTROPENIA
     Route: 042
     Dates: start: 20130819, end: 20130822
  17. VFEND [Concomitant]
     Indication: FEBRILE NEUTROPENIA
     Route: 042
     Dates: start: 20130820, end: 20130820

REACTIONS (2)
  - Interstitial lung disease [Recovered/Resolved]
  - Drug eruption [Recovered/Resolved]
